FAERS Safety Report 24681567 (Version 2)
Quarter: 2024Q4

REPORT INFORMATION
  Report Type: Spontaneous
  Country: DE (occurrence: DE)
  Receive Date: 20241130
  Receipt Date: 20241203
  Transmission Date: 20250114
  Serious: Yes (Life-Threatening, Hospitalization)
  Sender: BOEHRINGER INGELHEIM
  Company Number: DE-Komodo Health-a23aa000004Tq0vAAC

PATIENT
  Age: 84 Year
  Sex: Male

DRUGS (2)
  1. JARDIANCE [Suspect]
     Active Substance: EMPAGLIFLOZIN
     Indication: Cardiac failure
     Route: 048
     Dates: start: 202311
  2. INSULIN NOS [Concomitant]
     Active Substance: INSULIN NOS
     Indication: Product used for unknown indication

REACTIONS (4)
  - Renal failure [Unknown]
  - Respiratory tract infection [Unknown]
  - Urosepsis [Unknown]
  - Acidosis [Unknown]

NARRATIVE: CASE EVENT DATE: 20241123
